FAERS Safety Report 5798728-4 (Version None)
Quarter: 2008Q3

REPORT INFORMATION
  Report Type: 
  Country: None (occurrence: None)
  Receive Date: 20080702
  Receipt Date: 20080626
  Transmission Date: 20090109
  Serious: Yes (Other)
  Sender: FDA-Public Use
  Company Number: US-AMGEN-KDL275746

PATIENT
  Sex: Male
  Weight: 71.7 kg

DRUGS (2)
  1. PROCRIT [Suspect]
     Indication: ANAEMIA
     Route: 058
     Dates: start: 20071114, end: 20080306
  2. BLOOD CELLS, PACKED HUMAN [Concomitant]

REACTIONS (1)
  - APLASIA PURE RED CELL [None]
